FAERS Safety Report 24557545 (Version 2)
Quarter: 2025Q2

REPORT INFORMATION
  Report Type: Report from Study
  Country: BE (occurrence: BE)
  Receive Date: 20241028
  Receipt Date: 20250516
  Transmission Date: 20250716
  Serious: Yes (Hospitalization, Other)
  Sender: MYLAN
  Company Number: BE-CHEPLA-2024013044

PATIENT
  Age: 55 Year
  Sex: Female

DRUGS (28)
  1. TACROLIMUS [Suspect]
     Active Substance: TACROLIMUS
     Indication: Immunosuppressant drug therapy
  2. TACROLIMUS [Suspect]
     Active Substance: TACROLIMUS
     Route: 065
  3. TACROLIMUS [Suspect]
     Active Substance: TACROLIMUS
     Route: 065
  4. TACROLIMUS [Suspect]
     Active Substance: TACROLIMUS
  5. MYCOPHENOLATE MOFETIL [Suspect]
     Active Substance: MYCOPHENOLATE MOFETIL
     Indication: Immunosuppressant drug therapy
     Dosage: 1 GRAM, BID (MAINTENANCE IMMUNOSUPPRESSION, FROM DAY 0-325) INITIALLY DISCONTINUED, THEN RESUMED AND LATER SUBSTITUTED WITH AZATHIOPRINE
  6. MYCOPHENOLATE MOFETIL [Suspect]
     Active Substance: MYCOPHENOLATE MOFETIL
     Dosage: 1 GRAM, BID (MAINTENANCE IMMUNOSUPPRESSION, FROM DAY 0-325) INITIALLY DISCONTINUED, THEN RESUMED AND LATER SUBSTITUTED WITH AZATHIOPRINE
     Route: 065
  7. MYCOPHENOLATE MOFETIL [Suspect]
     Active Substance: MYCOPHENOLATE MOFETIL
     Dosage: 1 GRAM, BID (MAINTENANCE IMMUNOSUPPRESSION, FROM DAY 0-325) INITIALLY DISCONTINUED, THEN RESUMED AND LATER SUBSTITUTED WITH AZATHIOPRINE
     Route: 065
  8. MYCOPHENOLATE MOFETIL [Suspect]
     Active Substance: MYCOPHENOLATE MOFETIL
     Dosage: 1 GRAM, BID (MAINTENANCE IMMUNOSUPPRESSION, FROM DAY 0-325) INITIALLY DISCONTINUED, THEN RESUMED AND LATER SUBSTITUTED WITH AZATHIOPRINE
  9. GANCICLOVIR [Suspect]
     Active Substance: GANCICLOVIR
     Indication: Antiviral prophylaxis
     Dosage: 5 MILLIGRAM/KILOGRAM, BID (FOR 2 WEEKS, ON DAY 0 TO 14, INITIALLY CONTINUED, THEN DISCONTINUED)
  10. GANCICLOVIR [Suspect]
     Active Substance: GANCICLOVIR
     Dosage: 5 MILLIGRAM/KILOGRAM, BID (FOR 2 WEEKS, ON DAY 0 TO 14, INITIALLY CONTINUED, THEN DISCONTINUED)
     Route: 065
  11. GANCICLOVIR [Suspect]
     Active Substance: GANCICLOVIR
     Dosage: 5 MILLIGRAM/KILOGRAM, BID (FOR 2 WEEKS, ON DAY 0 TO 14, INITIALLY CONTINUED, THEN DISCONTINUED)
     Route: 065
  12. GANCICLOVIR [Suspect]
     Active Substance: GANCICLOVIR
     Dosage: 5 MILLIGRAM/KILOGRAM, BID (FOR 2 WEEKS, ON DAY 0 TO 14, INITIALLY CONTINUED, THEN DISCONTINUED)
  13. VALGANCICLOVIR [Suspect]
     Active Substance: VALGANCICLOVIR
     Indication: Antiviral prophylaxis
     Dosage: 900 MILLIGRAM, QD (FOR 6 MONTHS, ON D 15 TO 184)
  14. VALGANCICLOVIR [Suspect]
     Active Substance: VALGANCICLOVIR
     Dosage: 900 MILLIGRAM, QD (FOR 6 MONTHS, ON D 15 TO 184)
     Route: 065
  15. VALGANCICLOVIR [Suspect]
     Active Substance: VALGANCICLOVIR
     Dosage: 900 MILLIGRAM, QD (FOR 6 MONTHS, ON D 15 TO 184)
     Route: 065
  16. VALGANCICLOVIR [Suspect]
     Active Substance: VALGANCICLOVIR
     Dosage: 900 MILLIGRAM, QD (FOR 6 MONTHS, ON D 15 TO 184)
  17. METHYLPREDNISOLONE [Suspect]
     Active Substance: METHYLPREDNISOLONE
     Indication: Immunosuppressant drug therapy
  18. METHYLPREDNISOLONE [Suspect]
     Active Substance: METHYLPREDNISOLONE
  19. METHYLPREDNISOLONE [Suspect]
     Active Substance: METHYLPREDNISOLONE
     Route: 065
  20. METHYLPREDNISOLONE [Suspect]
     Active Substance: METHYLPREDNISOLONE
     Route: 065
  21. METHYLPREDNISOLONE [Suspect]
     Active Substance: METHYLPREDNISOLONE
  22. METHYLPREDNISOLONE [Suspect]
     Active Substance: METHYLPREDNISOLONE
  23. METHYLPREDNISOLONE [Suspect]
     Active Substance: METHYLPREDNISOLONE
     Route: 048
  24. METHYLPREDNISOLONE [Suspect]
     Active Substance: METHYLPREDNISOLONE
     Route: 048
  25. METHYLPREDNISOLONE [Suspect]
     Active Substance: METHYLPREDNISOLONE
  26. METHYLPREDNISOLONE [Suspect]
     Active Substance: METHYLPREDNISOLONE
     Route: 048
  27. METHYLPREDNISOLONE [Suspect]
     Active Substance: METHYLPREDNISOLONE
  28. METHYLPREDNISOLONE [Suspect]
     Active Substance: METHYLPREDNISOLONE
     Route: 048

REACTIONS (4)
  - Cytomegalovirus infection reactivation [Unknown]
  - Cytomegalovirus infection [Recovering/Resolving]
  - Drug ineffective [Unknown]
  - Drug resistance [Unknown]
